FAERS Safety Report 13583741 (Version 1)
Quarter: 2017Q2

REPORT INFORMATION
  Report Type: Spontaneous
  Country: DK (occurrence: DK)
  Receive Date: 20170526
  Receipt Date: 20170526
  Transmission Date: 20170830
  Serious: Yes (Death, Life-Threatening, Hospitalization, Other)
  Sender: FDA-Public Use
  Company Number: DK-ORION CORPORATION ORION PHARMA-17_00002383

PATIENT
  Age: 62 Year
  Sex: Female

DRUGS (6)
  1. METHOTREXATE. [Suspect]
     Active Substance: METHOTREXATE
     Dosage: TAKEN 2 DAYS PRIOR TO ADMISSION
     Route: 065
  2. HYDROCORTISONE, ORAL [Suspect]
     Active Substance: HYDROCORTISONE
     Indication: ADDISON^S DISEASE
     Route: 065
  3. METHOTREXATE. [Suspect]
     Active Substance: METHOTREXATE
     Dosage: TAKEN 9 DAYS PRIOR TO ADMISSION
     Route: 065
  4. HYDROCORTISONE, ORAL [Suspect]
     Active Substance: HYDROCORTISONE
     Dosage: UP TO 300 MG
     Route: 065
  5. FOLIC ACID. [Concomitant]
     Active Substance: FOLIC ACID
     Indication: RHEUMATOID ARTHRITIS
     Route: 065
  6. METHOTREXATE. [Suspect]
     Active Substance: METHOTREXATE
     Indication: RHEUMATOID ARTHRITIS
     Dosage: TAKEN 16 DAYS PRIOR TO ADMISSION
     Route: 065

REACTIONS (7)
  - Bone marrow toxicity [Recovered/Resolved]
  - Respiratory failure [Unknown]
  - Multiple organ dysfunction syndrome [Fatal]
  - Neutropenia [Unknown]
  - Bronchopulmonary aspergillosis [Fatal]
  - Pneumonia klebsiella [Unknown]
  - Pancytopenia [Unknown]
